FAERS Safety Report 15215271 (Version 1)
Quarter: 2018Q3

REPORT INFORMATION
  Report Type: Spontaneous
  Country: US (occurrence: US)
  Receive Date: 20180703
  Receipt Date: 20180703
  Transmission Date: 20181010
  Serious: No
  Sender: FDA-Public Use
  Company Number: None

PATIENT
  Sex: Female

DRUGS (1)
  1. ARIPIPRAZOLE. [Suspect]
     Active Substance: ARIPIPRAZOLE

REACTIONS (2)
  - Agitation [None]
  - Sleep disorder [None]
